FAERS Safety Report 9741424 (Version 1)
Quarter: 2013Q4

REPORT INFORMATION
  Report Type: Report from Study
  Country: ES (occurrence: ES)
  Receive Date: 20131209
  Receipt Date: 20131209
  Transmission Date: 20140711
  Serious: Yes (Other)
  Sender: FDA-Public Use
  Company Number: PHHY2013ES141712

PATIENT
  Age: 47 Year
  Sex: Female

DRUGS (2)
  1. EXTAVIA [Suspect]
     Dosage: 1 ML, UNK
     Route: 058
     Dates: start: 20081204, end: 200904
  2. EXTAVIA [Suspect]
     Dosage: 1 UKN, UNK
     Route: 058
     Dates: end: 20130515

REACTIONS (2)
  - Abortion spontaneous [Unknown]
  - Maternal exposure during pregnancy [Unknown]
